FAERS Safety Report 6430295-4 (Version None)
Quarter: 2009Q4

REPORT INFORMATION
  Report Type: 
  Country: None (occurrence: None)
  Receive Date: 20091106
  Receipt Date: 20091102
  Transmission Date: 20100525
  Serious: Yes (Death, Life-Threatening)
  Sender: FDA-Public Use
  Company Number: JP-WYE-H11940009

PATIENT
  Age: 80 Year
  Sex: Male

DRUGS (1)
  1. ZOSYN [Suspect]
     Indication: DRUG USE FOR UNKNOWN INDICATION
     Route: 041

REACTIONS (4)
  - CHRONIC OBSTRUCTIVE PULMONARY DISEASE [None]
  - CONCOMITANT DISEASE PROGRESSION [None]
  - PNEUMONIA [None]
  - RENAL IMPAIRMENT [None]
